FAERS Safety Report 13011357 (Version 1)
Quarter: 2016Q4

REPORT INFORMATION
  Report Type: Spontaneous
  Country: PR (occurrence: PR)
  Receive Date: 20161209
  Receipt Date: 20161209
  Transmission Date: 20170207
  Serious: Yes (Other)
  Sender: FDA-Public Use
  Company Number: PR-ROCHE-1841522

PATIENT
  Sex: Male

DRUGS (7)
  1. CATAFLAM [Concomitant]
     Active Substance: DICLOFENAC POTASSIUM
     Indication: ANALGESIC THERAPY
     Dosage: AS NEEDED
     Route: 065
  2. PREDNISONE. [Suspect]
     Active Substance: PREDNISONE
     Indication: RHEUMATOID ARTHRITIS
     Dosage: DOSE REDUCED
     Route: 065
  3. LOTREL (AMLODIPINE BESILATE/BENAZEPRIL HYDROCHLORIDE) [Concomitant]
     Indication: HYPERTENSION
  4. VALSARTAN. [Concomitant]
     Active Substance: VALSARTAN
     Indication: HYPERTENSION
     Dosage: DOSE: 160/12.5 MG
     Route: 065
  5. HUMIRA [Suspect]
     Active Substance: ADALIMUMAB
     Indication: RHEUMATOID ARTHRITIS
     Route: 065
  6. ACTEMRA [Suspect]
     Active Substance: TOCILIZUMAB
     Indication: RHEUMATOID ARTHRITIS
     Dosage: LAST DOSE: /JUN/2016
     Route: 042
     Dates: start: 201604
  7. LASIX [Concomitant]
     Active Substance: FUROSEMIDE
     Indication: PERIPHERAL SWELLING

REACTIONS (16)
  - Palpitations [Unknown]
  - Drug hypersensitivity [Unknown]
  - Fatigue [Unknown]
  - Feeling hot [Unknown]
  - Back pain [Unknown]
  - Fluid retention [Unknown]
  - Swelling [Not Recovered/Not Resolved]
  - Abdominal distension [Unknown]
  - Peripheral swelling [Unknown]
  - Chest pain [Unknown]
  - Hypoaesthesia [Unknown]
  - Drug intolerance [Unknown]
  - Gastric disorder [Unknown]
  - Pain [Unknown]
  - Heart rate irregular [Unknown]
  - Mouth ulceration [Unknown]
